FAERS Safety Report 10108947 (Version 4)
Quarter: 2014Q2

REPORT INFORMATION
  Report Type: Report from Study
  Country: US (occurrence: US)
  Receive Date: 20140425
  Receipt Date: 20140530
  Transmission Date: 20141212
  Serious: Yes (Hospitalization)
  Sender: FDA-Public Use
  Company Number: US-JNJFOC-20140416162

PATIENT
  Age: 15 Year
  Sex: Male
  Weight: 70.4 kg

DRUGS (3)
  1. REMICADE [Suspect]
     Indication: CROHN^S DISEASE
     Route: 042
  2. REMICADE [Suspect]
     Indication: CROHN^S DISEASE
     Route: 042
     Dates: start: 20050601, end: 20080507
  3. METHOTREXATE [Concomitant]
     Route: 065

REACTIONS (1)
  - Anal abscess [Recovered/Resolved]
